FAERS Safety Report 4649192-X (Version None)
Quarter: 2005Q2

REPORT INFORMATION
  Report Type: 
  Country: None (occurrence: None)
  Receive Date: 20050427
  Receipt Date: 20050414
  Transmission Date: 20051028
  Serious: Yes (Life-Threatening)
  Sender: FDA-Public Use
  Company Number: 2005060305

PATIENT
  Age: 5 Year
  Sex: Female
  Weight: 25 kg

DRUGS (5)
  1. GENOTROPIN [Suspect]
     Indication: HYPOPITUITARISM
     Dosage: 0.5 MG (0.5 MG, DAILY)
     Dates: start: 20040116, end: 20040820
  2. DESMOPRESSIN (DESMOPRESSIN) [Concomitant]
  3. HYDROCORTISONE ACETATE (HYDROCORTISONE ACETATE) [Concomitant]
  4. LEVOTHYROXINE SODIUM [Concomitant]
  5. MOMETASONE FUROATE [Concomitant]

REACTIONS (1)
  - NEOPLASM RECURRENCE [None]
